FAERS Safety Report 10303224 (Version 2)
Quarter: 2014Q4

REPORT INFORMATION
  Report Type: Spontaneous
  Country: US (occurrence: US)
  Receive Date: 20140714
  Receipt Date: 20141009
  Transmission Date: 20150528
  Serious: No
  Sender: FDA-Public Use
  Company Number: US-ASTELLAS-2014US006958

PATIENT
  Sex: Male

DRUGS (2)
  1. MYRBETRIQ [Suspect]
     Active Substance: MIRABEGRON
     Dosage: 50 MG DAILY AND AN ADDITIONAL HALF OF A 50 MG TABLET EVERY 3RD DAY
     Route: 048
     Dates: start: 20140201
  2. MYRBETRIQ [Suspect]
     Active Substance: MIRABEGRON
     Indication: INCONTINENCE
     Route: 048
     Dates: start: 20131120, end: 20140201

REACTIONS (4)
  - Intentional overdose [Unknown]
  - Wrong technique in drug usage process [Unknown]
  - Drug effect incomplete [Unknown]
  - Intentional product use issue [Unknown]
